FAERS Safety Report 16591091 (Version 2)
Quarter: 2019Q3

REPORT INFORMATION
  Report Type: Report from Study
  Country: JP (occurrence: JP)
  Receive Date: 20190718
  Receipt Date: 20190906
  Transmission Date: 20191004
  Serious: Yes (Other)
  Sender: FDA-Public Use
  Company Number: PHJP2019JP009300

PATIENT
  Age: 75 Year
  Sex: Male

DRUGS (3)
  1. MEKINIST [Suspect]
     Active Substance: TRAMETINIB DIMETHYL SULFOXIDE
     Indication: MALIGNANT MELANOMA STAGE IV
     Dosage: 2 MG, UNK
     Route: 048
     Dates: start: 20171031, end: 20181023
  2. RANMARK [Concomitant]
     Active Substance: DENOSUMAB
     Indication: MALIGNANT MELANOMA STAGE IV
     Dosage: 120 MG, UNK
     Route: 065
  3. TAFINLAR [Suspect]
     Active Substance: DABRAFENIB MESYLATE
     Indication: MALIGNANT MELANOMA STAGE IV
     Dosage: 300 MG, UNK
     Route: 048
     Dates: start: 20171031, end: 20181023

REACTIONS (2)
  - Arrhythmia [Not Recovered/Not Resolved]
  - Glucose urine present [Recovering/Resolving]

NARRATIVE: CASE EVENT DATE: 20180123
